FAERS Safety Report 19992837 (Version 1)
Quarter: 2021Q4

REPORT INFORMATION
  Report Type: Spontaneous
  Country: US (occurrence: US)
  Receive Date: 20211025
  Receipt Date: 20211025
  Transmission Date: 20220303
  Serious: No
  Sender: FDA-Public Use
  Company Number: US-ENDO PHARMACEUTICALS INC-2021-011351

PATIENT
  Age: 26 Year
  Sex: Female

DRUGS (3)
  1. QWO [Suspect]
     Active Substance: COLLAGENASE CLOSTRIDIUM HISTOLYTICUM-AAES
     Indication: Peau d^orange
     Dosage: UNK, UNKNOWN, (TREATMENT ONE) (24 INJECTION SITES)
     Route: 065
     Dates: start: 20210727
  2. QWO [Suspect]
     Active Substance: COLLAGENASE CLOSTRIDIUM HISTOLYTICUM-AAES
     Dosage: UNK, UNKNOWN, (TREATMENT TWO) (24 INJECTION SITES)
     Route: 065
     Dates: start: 20210820
  3. LO LOESTRIN FE [Concomitant]
     Active Substance: ETHINYL ESTRADIOL\NORETHINDRONE ACETATE
     Indication: Contraception
     Dosage: UNK UNKNOWN, DAILY
     Route: 048

REACTIONS (9)
  - Lymphadenopathy [Recovered/Resolved]
  - Lymph node pain [Recovered/Resolved]
  - Pyrexia [Recovered/Resolved]
  - Hyperhidrosis [Recovered/Resolved]
  - Chills [Recovered/Resolved]
  - Pain [Recovered/Resolved]
  - Erythema [Recovered/Resolved]
  - Hypersensitivity [Recovered/Resolved]
  - Administration site warmth [Recovered/Resolved]

NARRATIVE: CASE EVENT DATE: 20210101
